FAERS Safety Report 6273018-4 (Version None)
Quarter: 2009Q3

REPORT INFORMATION
  Report Type: 
  Country: None (occurrence: None)
  Receive Date: 20090716
  Receipt Date: 20090716
  Transmission Date: 20100115
  Serious: Yes (Hospitalization)
  Sender: FDA-Public Use
  Company Number: None

PATIENT
  Sex: Male
  Weight: 95 kg

DRUGS (3)
  1. FLUOROURACIL [Suspect]
     Dosage: 5990 MG
     Dates: end: 20090630
  2. LEUCOVORIN CALCIUM [Suspect]
     Dosage: 855 MG
     Dates: end: 20090630
  3. ELOXATIN [Suspect]
     Dosage: 181 MG
     Dates: end: 20090630

REACTIONS (5)
  - DEHYDRATION [None]
  - DIARRHOEA [None]
  - FATIGUE [None]
  - NAUSEA [None]
  - VOMITING [None]
